FAERS Safety Report 10550460 (Version 1)
Quarter: 2014Q4

REPORT INFORMATION
  Report Type: Spontaneous
  Country: US (occurrence: US)
  Receive Date: 20141029
  Receipt Date: 20141029
  Transmission Date: 20150529
  Serious: No
  Sender: FDA-Public Use
  Company Number: US-TEVA-463160USA

PATIENT
  Age: 36 Year
  Sex: Female

DRUGS (4)
  1. CLOMIPHENE [Concomitant]
     Active Substance: CLOMIPHENE
  2. RISPERIDONE. [Concomitant]
     Active Substance: RISPERIDONE
  3. PROVIGIL [Suspect]
     Active Substance: MODAFINIL
     Indication: SOMNOLENCE
     Dosage: 100 MILLIGRAM DAILY;
     Dates: start: 20131228, end: 20140212
  4. MAGNESIUM CARBONATE [Concomitant]
     Active Substance: MAGNESIUM CARBONATE

REACTIONS (5)
  - Off label use [Recovered/Resolved]
  - Anger [Not Recovered/Not Resolved]
  - Crying [Not Recovered/Not Resolved]
  - Abnormal behaviour [Not Recovered/Not Resolved]
  - Tobacco user [Not Recovered/Not Resolved]

NARRATIVE: CASE EVENT DATE: 201402
